FAERS Safety Report 23704712 (Version 1)
Quarter: 2024Q2

REPORT INFORMATION
  Report Type: Spontaneous
  Country: US (occurrence: US)
  Receive Date: 20240404
  Receipt Date: 20240404
  Transmission Date: 20240716
  Serious: No
  Sender: FDA-Public Use
  Company Number: US-ABBVIE-5694755

PATIENT
  Age: 21 Year
  Sex: Female
  Weight: 81 kg

DRUGS (4)
  1. UBRELVY [Suspect]
     Active Substance: UBROGEPANT
     Indication: Migraine
     Dosage: FORM STRENGTH: 100 MILLIGRAM?FREQUENCY TEXT: PRN, THEN EVERY 2 HOURS
     Route: 048
     Dates: start: 20210525, end: 20210702
  2. AJOVY [Suspect]
     Active Substance: FREMANEZUMAB-VFRM
     Indication: Migraine
     Dosage: 225MG
     Route: 048
     Dates: start: 20200910, end: 20210702
  3. DESVENLAFAXINE [Concomitant]
     Active Substance: DESVENLAFAXINE
     Indication: Depression
     Dosage: 100 MG
     Route: 048
     Dates: start: 20210525, end: 20210702
  4. METRONIDAZOLE [Concomitant]
     Active Substance: METRONIDAZOLE
     Indication: Bacterial vaginosis
     Dosage: .75% 5 GRAMS?FREQUENCY TEXT: ONCE DAILY FOR 10 DAYS
     Route: 067
     Dates: start: 20211216, end: 20211225

REACTIONS (5)
  - Maternal exposure during pregnancy [Unknown]
  - Disease risk factor [Recovered/Resolved]
  - Bacterial vaginosis [Recovered/Resolved]
  - Depression [Unknown]
  - Live birth [Unknown]

NARRATIVE: CASE EVENT DATE: 20210521
